FAERS Safety Report 5317777-3 (Version None)
Quarter: 2007Q2

REPORT INFORMATION
  Report Type: 
  Country: None (occurrence: None)
  Receive Date: 20070502
  Receipt Date: 20070502
  Transmission Date: 20071010
  Serious: Yes (Life-Threatening)
  Sender: FDA-Public Use
  Company Number: None

PATIENT
  Age: 53 Year
  Sex: Female
  Weight: 50 kg

DRUGS (1)
  1. INTERFERON A2B [Suspect]
     Dosage: 3,000,000 UNITS DAILY

REACTIONS (4)
  - HYPERKALAEMIA [None]
  - HYPERURICAEMIA [None]
  - HYPOCALCAEMIA [None]
  - TUMOUR LYSIS SYNDROME [None]
